FAERS Safety Report 11186840 (Version 1)
Quarter: 2015Q2

REPORT INFORMATION
  Report Type: Spontaneous
  Country: CA (occurrence: CA)
  Receive Date: 20150614
  Receipt Date: 20150614
  Transmission Date: 20150821
  Serious: Yes (Disabling, Other)
  Sender: FDA-Public Use
  Company Number: CA-TEVA-570378ACC

PATIENT
  Age: 33 Year
  Sex: Male

DRUGS (2)
  1. ZOPICLONE [Concomitant]
     Active Substance: ZOPICLONE
     Dosage: UNKNOWN FORM STRENGTH
     Route: 065
  2. QUETIAPINE [Suspect]
     Active Substance: QUETIAPINE
     Indication: INSOMNIA
     Dosage: 125 MILLIGRAM DAILY;
     Route: 048

REACTIONS (6)
  - Hot flush [Unknown]
  - Mania [Unknown]
  - Depressive symptom [Unknown]
  - Blood glucose increased [Unknown]
  - Weight increased [Unknown]
  - Hypervigilance [Unknown]
